FAERS Safety Report 16153371 (Version 2)
Quarter: 2019Q2

REPORT INFORMATION
  Report Type: Spontaneous
  Country: US (occurrence: US)
  Receive Date: 20190403
  Receipt Date: 20190426
  Transmission Date: 20190711
  Serious: No
  Sender: FDA-Public Use
  Company Number: US-ASTRAZENECA-2019SE40653

PATIENT
  Sex: Female
  Weight: 90.7 kg

DRUGS (1)
  1. TUDORZA PRESSAIR [Suspect]
     Active Substance: ACLIDINIUM BROMIDE
     Indication: CHRONIC OBSTRUCTIVE PULMONARY DISEASE
     Dosage: 2 PUFFS ONCE A DAY
     Route: 055
     Dates: start: 2019

REACTIONS (3)
  - Device malfunction [Unknown]
  - Off label use [Unknown]
  - Product dose omission [Unknown]
